FAERS Safety Report 15710649 (Version 3)
Quarter: 2019Q1

REPORT INFORMATION
  Report Type: Spontaneous
  Country: SI (occurrence: SI)
  Receive Date: 20181211
  Receipt Date: 20190327
  Transmission Date: 20190417
  Serious: Yes (Hospitalization)
  Sender: FDA-Public Use
  Company Number: SI-NOVOPROD-636823

PATIENT
  Age: 61 Year
  Sex: Male
  Weight: 83 kg

DRUGS (1)
  1. XULTOPHY 100/3.6 [Suspect]
     Active Substance: INSULIN DEGLUDEC\LIRAGLUTIDE
     Indication: TYPE 2 DIABETES MELLITUS
     Dosage: 40 IU, QD, 40 DOSE STEPS
     Route: 065
     Dates: start: 20180613

REACTIONS (4)
  - Optic neuropathy [Not Recovered/Not Resolved]
  - Optic disc disorder [Not Recovered/Not Resolved]
  - Glycosylated haemoglobin increased [Unknown]
  - Optic neuritis [Not Recovered/Not Resolved]
